FAERS Safety Report 20561199 (Version 1)
Quarter: 2022Q1

REPORT INFORMATION
  Report Type: Spontaneous
  Country: US (occurrence: None)
  Receive Date: 20220304
  Receipt Date: 20220304
  Transmission Date: 20220423
  Serious: Yes (unspecified)
  Sender: FDA-Public Use
  Company Number: None

PATIENT
  Age: 63 Year
  Sex: Female
  Weight: 60.7 kg

DRUGS (1)
  1. LARYNG-O-JET [Suspect]
     Active Substance: LIDOCAINE HYDROCHLORIDE

REACTIONS (4)
  - Device breakage [None]
  - Wrong technique in device usage process [None]
  - Product packaging confusion [None]
  - Product outer packaging issue [None]

NARRATIVE: CASE EVENT DATE: 20220216
